FAERS Safety Report 21455299 (Version 1)
Quarter: 2022Q4

REPORT INFORMATION
  Report Type: Spontaneous
  Country: US (occurrence: US)
  Receive Date: 20221014
  Receipt Date: 20221014
  Transmission Date: 20230113
  Serious: No
  Sender: FDA-Public Use
  Company Number: US-SA-SAC20221012000640

PATIENT
  Sex: Female

DRUGS (37)
  1. AUBAGIO [Suspect]
     Active Substance: TERIFLUNOMIDE
     Indication: Multiple sclerosis
     Dosage: 1 DF, QD
     Route: 048
     Dates: start: 201811
  2. OCTAGAM IMMUNE GLOBULIN (HUMAN) [Suspect]
     Active Substance: HUMAN IMMUNOGLOBULIN G
     Dosage: UNK
  3. TOVIAZ [Concomitant]
     Active Substance: FESOTERODINE FUMARATE
     Dosage: UNK
  4. ELETRIPTAN HYDROBROMIDE [Concomitant]
     Active Substance: ELETRIPTAN HYDROBROMIDE
     Dosage: UNK
  5. BACLOFEN [Concomitant]
     Active Substance: BACLOFEN
     Dosage: UNK
  6. DIAZEPAM [Concomitant]
     Active Substance: DIAZEPAM
     Dosage: UNK
  7. HYDRALAZINE HCL [Concomitant]
     Active Substance: HYDRALAZINE HYDROCHLORIDE
     Dosage: UNK
  8. CLOTRIMAZOLE [Concomitant]
     Active Substance: CLOTRIMAZOLE
     Dosage: UNK
  9. VITAMIN D2 [Concomitant]
     Active Substance: ERGOCALCIFEROL
     Dosage: UNK
  10. LIDODERM [Concomitant]
     Active Substance: LIDOCAINE
     Dosage: UNK
  11. ACETAMINOPHEN [Concomitant]
     Active Substance: ACETAMINOPHEN
     Dosage: UNK
  12. DIPHENHYDRAMINE [Concomitant]
     Active Substance: DIPHENHYDRAMINE
     Dosage: UNK
  13. HEPARIN [Concomitant]
     Active Substance: HEPARIN SODIUM
     Dosage: UNK
  14. LIDOCAINE [Concomitant]
     Active Substance: LIDOCAINE
     Dosage: UNK
  15. METHYLPREDNISOLONE [Concomitant]
     Active Substance: METHYLPREDNISOLONE
     Dosage: UNK
  16. EPINEPHRINE [Concomitant]
     Active Substance: EPINEPHRINE
     Dosage: UNK
  17. VENLAFAXINE HCL [Concomitant]
     Active Substance: VENLAFAXINE HYDROCHLORIDE
     Dosage: UNK
  18. GABAPENTIN [Concomitant]
     Active Substance: GABAPENTIN
     Dosage: UNK
  19. ONDANSETRON HCL [Concomitant]
     Active Substance: ONDANSETRON HYDROCHLORIDE
     Dosage: UNK
  20. MOVANTIK [Concomitant]
     Active Substance: NALOXEGOL OXALATE
     Dosage: UNK
  21. SALAGEN [Concomitant]
     Active Substance: PILOCARPINE HYDROCHLORIDE
     Dosage: UNK
  22. PERCOCET [Concomitant]
     Active Substance: ACETAMINOPHEN\OXYCODONE HYDROCHLORIDE
     Dosage: UNK
  23. BIOTIN [Concomitant]
     Active Substance: BIOTIN
  24. MYRBETRIQ [Concomitant]
     Active Substance: MIRABEGRON
  25. CLARITIN-D NOS [Concomitant]
     Active Substance: LORATADINE\PSEUDOEPHEDRINE SULFATE
  26. .ALPHA.-TOCOPHEROL [Concomitant]
     Active Substance: .ALPHA.-TOCOPHEROL
  27. RETINOL [Concomitant]
     Active Substance: RETINOL
  28. COPPER;ZINC [Concomitant]
  29. HERBALS\TURMERIC [Concomitant]
     Active Substance: HERBALS\TURMERIC
  30. MOVE FREE ULTRA TRIPLE ACTION [Concomitant]
  31. OMEGA 3 + VITAMIN D [Concomitant]
  32. VITAMINS NOS [Concomitant]
     Active Substance: VITAMINS
  33. MAGNESIUM [Concomitant]
     Active Substance: MAGNESIUM
  34. PROBIOTICS NOS [Concomitant]
     Active Substance: PROBIOTICS NOS
  35. VITAMIN B COMPLEX [Concomitant]
     Active Substance: CYANOCOBALAMIN\DEXPANTHENOL\NIACINAMIDE\PYRIDOXINE HYDROCHLORIDE\RIBOFLAVIN 5^-PHOSPHATE SODIUM\THIA
  36. SODIUM CHLORIDE [Concomitant]
     Active Substance: SODIUM CHLORIDE
  37. POLYVINYL ALCOHOL\POVIDONE [Concomitant]
     Active Substance: POLYVINYL ALCOHOL\POVIDONE

REACTIONS (2)
  - Headache [Unknown]
  - Hypertension [Unknown]
